FAERS Safety Report 6901020-5 (Version None)
Quarter: 2010Q3

REPORT INFORMATION
  Report Type: 
  Country: None (occurrence: None)
  Receive Date: 20100730
  Receipt Date: 20100720
  Transmission Date: 20110219
  Serious: Yes (Other)
  Sender: FDA-Public Use
  Company Number: 015785

PATIENT
  Age: 31 Year
  Sex: Male

DRUGS (3)
  1. VIMPAT [Suspect]
     Indication: COMPLEX PARTIAL SEIZURES
     Dosage: 50MG BID ORAL
     Route: 048
     Dates: start: 20091201
  2. KEPPRA [Concomitant]
  3. TEGRETOL [Concomitant]

REACTIONS (2)
  - HOMICIDAL IDEATION [None]
  - VIOLENCE-RELATED SYMPTOM [None]
